FAERS Safety Report 17445784 (Version 1)
Quarter: 2020Q1

REPORT INFORMATION
  Report Type: Spontaneous
  Country: CA (occurrence: CA)
  Receive Date: 20200221
  Receipt Date: 20200221
  Transmission Date: 20200409
  Serious: Yes (Other)
  Sender: FDA-Public Use
  Company Number: CA-PFIZER INC-2020077058

PATIENT

DRUGS (4)
  1. CABERGOLINE. [Suspect]
     Active Substance: CABERGOLINE
     Indication: ACROMEGALY
  2. CABERGOLINE. [Suspect]
     Active Substance: CABERGOLINE
     Indication: SECRETORY ADENOMA OF PITUITARY
     Dosage: UNK
     Route: 065
  3. LANREOTIDE ACETATE [Suspect]
     Active Substance: LANREOTIDE ACETATE
     Indication: SECRETORY ADENOMA OF PITUITARY
     Dosage: 120 MG, UNK
     Route: 065
  4. LANREOTIDE ACETATE [Suspect]
     Active Substance: LANREOTIDE ACETATE
     Indication: ACROMEGALY

REACTIONS (1)
  - Insulin-like growth factor increased [Unknown]
